FAERS Safety Report 11878658 (Version 1)
Quarter: 2015Q4

REPORT INFORMATION
  Report Type: Spontaneous
  Country: BR (occurrence: BR)
  Receive Date: 20151230
  Receipt Date: 20151230
  Transmission Date: 20160305
  Serious: Yes (Hospitalization)
  Sender: FDA-Public Use
  Company Number: BR-PFIZER INC-2015471559

PATIENT
  Age: 75 Year
  Sex: Male
  Weight: 160 kg

DRUGS (16)
  1. HYDROCHLOROTHIAZIDE. [Suspect]
     Active Substance: HYDROCHLOROTHIAZIDE
     Dosage: UNK
     Route: 065
  2. ATENOLOL. [Suspect]
     Active Substance: ATENOLOL
     Dosage: 50 MG, UNK
     Route: 048
  3. DILTIAZEM [Suspect]
     Active Substance: DILTIAZEM
     Dosage: 30 MG, UNK
     Route: 065
  4. DAPTOMYCIN. [Suspect]
     Active Substance: DAPTOMYCIN
     Indication: SEPSIS
     Dosage: 750 MG, 1X/DAY
     Route: 042
     Dates: start: 20150904, end: 20150912
  5. FOLIC ACID. [Concomitant]
     Active Substance: FOLIC ACID
     Dosage: UNK
  6. OMEPRAZOLE. [Suspect]
     Active Substance: OMEPRAZOLE
     Dosage: 40 MG, UNK
     Route: 048
  7. ATORVASTATIN CALCIUM. [Suspect]
     Active Substance: ATORVASTATIN CALCIUM
     Dosage: 20 MG, 1X/DAY
     Route: 065
  8. BUDESONIDE FORMOTEROL FUMARATE DIHYDRATE [Concomitant]
     Dosage: UNK
  9. FUROSEMIDE. [Concomitant]
     Active Substance: FUROSEMIDE
     Dosage: 40 MG, 1X/DAY
  10. ENALAPRIL MALEATE. [Suspect]
     Active Substance: ENALAPRIL MALEATE
     Dosage: 20 MG, UNK
     Route: 065
  11. RISPERIDONE. [Suspect]
     Active Substance: RISPERIDONE
     Dosage: 1 MG, 1X/DAY
     Route: 065
  12. CEFTRIAXONE SODIUM. [Concomitant]
     Active Substance: CEFTRIAXONE SODIUM
     Dosage: 1 G, UNK
  13. ZOLPIDEM TARTRATE. [Suspect]
     Active Substance: ZOLPIDEM TARTRATE
     Dosage: 10 MG, UNK
     Route: 065
  14. PHENYTOIN. [Suspect]
     Active Substance: PHENYTOIN
     Dosage: 100 MG, Q8H; UNKNOWN
     Route: 065
  15. ENOXAPARIN SODIUM. [Concomitant]
     Active Substance: ENOXAPARIN SODIUM
     Dosage: UNK
  16. DIPIRONE [Concomitant]
     Active Substance: METAMIZOLE SODIUM
     Dosage: 1/2 G/ ML; UNKNOWN

REACTIONS (6)
  - Urticaria [Unknown]
  - Erythema [Unknown]
  - Skin exfoliation [Unknown]
  - Rash pustular [Unknown]
  - Pruritus [Unknown]
  - Skin lesion [Unknown]

NARRATIVE: CASE EVENT DATE: 20150904
